FAERS Safety Report 16332363 (Version 3)
Quarter: 2019Q2

REPORT INFORMATION
  Report Type: Spontaneous
  Country: US (occurrence: US)
  Receive Date: 20190520
  Receipt Date: 20190612
  Transmission Date: 20190711
  Serious: No
  Sender: FDA-Public Use
  Company Number: US-PFIZER INC-2019141191

PATIENT
  Age: 53 Year
  Sex: Female

DRUGS (1)
  1. PREMARIN [Suspect]
     Active Substance: ESTROGENS, CONJUGATED
     Indication: MENOPAUSE
     Dosage: 1 G, UNK (SIG: 1 GRAM PV 5 DAYS PER WEEK)
     Route: 067

REACTIONS (3)
  - Product prescribing error [Unknown]
  - Off label use [Unknown]
  - Migraine [Unknown]
